FAERS Safety Report 5885016-0 (Version None)
Quarter: 2008Q3

REPORT INFORMATION
  Report Type: 
  Country: None (occurrence: None)
  Receive Date: 20080912
  Receipt Date: 20080808
  Transmission Date: 20090109
  Serious: Yes (Other)
  Sender: FDA-Public Use
  Company Number: PIR00199-8112008141056

PATIENT
  Sex: Male

DRUGS (1)
  1. HIBICLENS [Suspect]
     Indication: SKIN DISORDER
     Dosage: 060
     Dates: start: 20080806

REACTIONS (6)
  - APPLICATION SITE EXFOLIATION [None]
  - APPLICATION SITE PRURITUS [None]
  - APPLICATION SITE REACTION [None]
  - HYPERSENSITIVITY [None]
  - INFLAMMATION [None]
  - RASH GENERALISED [None]
